FAERS Safety Report 6616820-9 (Version None)
Quarter: 2010Q1

REPORT INFORMATION
  Report Type: 
  Country: None (occurrence: None)
  Receive Date: 20100305
  Receipt Date: 20100223
  Transmission Date: 20100710
  Serious: Yes (Death, Hospitalization)
  Sender: FDA-Public Use
  Company Number: US-PFIZER INC-2009315305

PATIENT
  Sex: Female

DRUGS (9)
  1. SUTENT [Suspect]
     Indication: RENAL CELL CARCINOMA
     Dosage: 50 MG, 1X/DAY
     Dates: start: 20091120
  2. ASPIRIN [Concomitant]
  3. DURAGESIC-100 [Concomitant]
  4. CARDIZEM [Concomitant]
  5. FERROUS SULFATE [Concomitant]
  6. MEGACE [Concomitant]
  7. FOLIC ACID [Concomitant]
  8. CIPROFLOXACIN [Concomitant]
  9. ATIVAN [Concomitant]

REACTIONS (4)
  - CARDIAC FAILURE [None]
  - DISEASE PROGRESSION [None]
  - RENAL CELL CARCINOMA [None]
  - SUPRAVENTRICULAR TACHYCARDIA [None]
